FAERS Safety Report 16267304 (Version 2)
Quarter: 2020Q3

REPORT INFORMATION
  Report Type: Report from Study
  Country: None (occurrence: US)
  Receive Date: 20190502
  Receipt Date: 20200921
  Transmission Date: 20201102
  Serious: Yes (Hospitalization)
  Sender: FDA-Public Use
  Company Number: US-ABBVIE-19K-163-2760276-00

PATIENT
  Sex: Male

DRUGS (2)
  1. HUMIRA [Suspect]
     Active Substance: ADALIMUMAB
     Indication: CROHN^S DISEASE
     Route: 058
  2. HUMIRA [Suspect]
     Active Substance: ADALIMUMAB
     Route: 058

REACTIONS (5)
  - Device issue [Unknown]
  - Blood magnesium decreased [Unknown]
  - Enzyme level decreased [Unknown]
  - Intestinal obstruction [Recovering/Resolving]
  - Blood potassium decreased [Unknown]

NARRATIVE: CASE EVENT DATE: 2019
